FAERS Safety Report 25179656 (Version 2)
Quarter: 2025Q2

REPORT INFORMATION
  Report Type: Spontaneous
  Country: US (occurrence: US)
  Receive Date: 20250409
  Receipt Date: 20250619
  Transmission Date: 20250717
  Serious: No
  Sender: DR REDDYS
  Company Number: US-DRL-USA-USA/2025/03/004840

PATIENT
  Age: 48 Year
  Sex: Female

DRUGS (1)
  1. HALOETTE [Suspect]
     Active Substance: ETHINYL ESTRADIOL\ETONOGESTREL
     Indication: Contraception
     Route: 067

REACTIONS (7)
  - Device breakage [Unknown]
  - Intentional device use issue [Unknown]
  - Product storage error [Unknown]
  - Pain [Unknown]
  - Discomfort [Unknown]
  - Menstruation irregular [Unknown]
  - Sexual dysfunction [Unknown]
